FAERS Safety Report 6115099-4 (Version None)
Quarter: 2009Q1

REPORT INFORMATION
  Report Type: 
  Country: None (occurrence: None)
  Receive Date: 20090313
  Receipt Date: 20090310
  Transmission Date: 20090719
  Serious: Yes (Life-Threatening)
  Sender: FDA-Public Use
  Company Number: D0060379A

PATIENT
  Age: 71 Year
  Sex: Male
  Weight: 94 kg

DRUGS (4)
  1. ZOVIRAX [Suspect]
     Indication: HERPES ZOSTER
     Dosage: 800MG FOUR TIMES PER DAY
     Route: 048
     Dates: start: 20081227, end: 20090102
  2. BELOC ZOK [Suspect]
     Dosage: 95MG AT NIGHT
     Route: 048
  3. KARVEA [Concomitant]
     Dosage: 150MG IN THE MORNING
     Route: 048
  4. NOVODIGAL [Concomitant]
     Dosage: .2MG SEE DOSAGE TEXT
     Route: 048

REACTIONS (4)
  - ANGINA PECTORIS [None]
  - ARRHYTHMIA [None]
  - DRUG INTERACTION [None]
  - EXTRASYSTOLES [None]
